FAERS Safety Report 21173268 (Version 2)
Quarter: 2022Q3

REPORT INFORMATION
  Report Type: Spontaneous
  Country: US (occurrence: None)
  Receive Date: 20220804
  Receipt Date: 20220906
  Transmission Date: 20221027
  Serious: Yes (Other)
  Sender: FDA-Public Use
  Company Number: 2022A269080

PATIENT
  Sex: Female

DRUGS (1)
  1. TEZSPIRE [Suspect]
     Active Substance: TEZEPELUMAB-EKKO
     Dosage: AT 10:40 A.M. AND AT 10:50 A.M.
     Route: 065
     Dates: start: 20220727

REACTIONS (4)
  - Blood pressure systolic increased [Unknown]
  - Sensation of foreign body [Unknown]
  - Headache [Unknown]
  - Throat tightness [Unknown]

NARRATIVE: CASE EVENT DATE: 20220727
